FAERS Safety Report 16344055 (Version 2)
Quarter: 2019Q2

REPORT INFORMATION
  Report Type: Spontaneous
  Country: NZ (occurrence: NZ)
  Receive Date: 20190522
  Receipt Date: 20190530
  Transmission Date: 20190711
  Serious: Yes (Death, Hospitalization)
  Sender: FDA-Public Use
  Company Number: NZ-GLAXOSMITHKLINE-NZ2019GSK078535

PATIENT

DRUGS (1)
  1. NUCALA [Suspect]
     Active Substance: MEPOLIZUMAB
     Indication: HYPEREOSINOPHILIC SYNDROME
     Dosage: 100 MG, UNK

REACTIONS (2)
  - Off label use [Fatal]
  - Product use in unapproved indication [Fatal]
